FAERS Safety Report 4680596-5 (Version None)
Quarter: 2005Q2

REPORT INFORMATION
  Report Type: 
  Country: None (occurrence: None)
  Receive Date: 20050531
  Receipt Date: 20050301
  Transmission Date: 20051028
  Serious: Yes (Life-Threatening)
  Sender: FDA-Public Use
  Company Number: 239371

PATIENT
  Age: 74 Year
  Sex: Male
  Weight: 87.5 kg

DRUGS (12)
  1. NOVOLOG MIX 70/30 [Suspect]
     Indication: INSULIN-REQUIRING TYPE II DIABETES MELLITUS
     Dosage: 8 IU, QD, SUBCUTANEOUS
     Route: 058
     Dates: start: 20040911
  2. ATENOLOL [Concomitant]
  3. ALTACE [Concomitant]
  4. FUROSEMIDE [Concomitant]
  5. SPIRONOLACTONE (SPIRINOLACTONE) [Concomitant]
  6. METOLAZONE [Concomitant]
  7. LIPITOR [Concomitant]
  8. PERIOSTAT [Concomitant]
  9. CARBIDOPA W/ LEVODOPA (CARBIDOPA) [Concomitant]
  10. COMTAN [Concomitant]
  11. B12 ^RECIP^ (CYANOCOBALAMIN-TANNIN COMPLEX) [Concomitant]
  12. KCL (POTASSIUM CHLORIDE) [Concomitant]

REACTIONS (1)
  - HYPOGLYCAEMIC COMA [None]
